FAERS Safety Report 8582902-8 (Version None)
Quarter: 2012Q3

REPORT INFORMATION
  Report Type: 
  Country: None (occurrence: None)
  Receive Date: 20120809
  Receipt Date: 20120730
  Transmission Date: 20120928
  Serious: Yes (Hospitalization)
  Sender: FDA-Public Use
  Company Number: US-VIROPHARMA INCORPORATED-20120715CINRY3170

PATIENT
  Sex: Male

DRUGS (1)
  1. CINRYZE [Suspect]
     Indication: HEREDITARY ANGIOEDEMA

REACTIONS (5)
  - UNDERDOSE [None]
  - MENTAL IMPAIRMENT [None]
  - STREPTOCOCCAL INFECTION [None]
  - PRODUCT RECONSTITUTION ISSUE [None]
  - DEVICE RELATED SEPSIS [None]
